FAERS Safety Report 4889366-6 (Version None)
Quarter: 2006Q1

REPORT INFORMATION
  Report Type: 
  Country: None (occurrence: None)
  Receive Date: 20060120
  Receipt Date: 20060109
  Transmission Date: 20060701
  Serious: Yes (Hospitalization, Disabling, Other)
  Sender: FDA-Public Use
  Company Number: 2005146483

PATIENT
  Age: 19 Year
  Sex: Male
  Weight: 86.8 kg

DRUGS (11)
  1. VFEND [Suspect]
     Indication: FUSARIUM INFECTION
     Dosage: UNKNOWN (UNK, 1 IN 12 HR); INTRAVENOUS
     Route: 042
     Dates: start: 20051012, end: 20051023
  2. VFEND [Suspect]
     Indication: LUNG INFECTION
     Dosage: UNKNOWN (UNK, 1 IN 12 HR); INTRAVENOUS
     Route: 042
     Dates: start: 20051012, end: 20051023
  3. HYDROCORTISONE [Concomitant]
  4. FENTANYL [Concomitant]
  5. OXYCODONE [Concomitant]
  6. MIRALAX [Concomitant]
  7. CHEMOTHERAPY NOS [Concomitant]
  8. PENICILLIN [Concomitant]
  9. VALTREX [Concomitant]
  10. PEPCID [Concomitant]
  11. AMBIEN [Concomitant]

REACTIONS (4)
  - BLINDNESS [None]
  - LEUKAEMIA [None]
  - NERVOUS SYSTEM DISORDER [None]
  - OPTIC NEURITIS [None]
